FAERS Safety Report 25432565 (Version 1)
Quarter: 2025Q2

REPORT INFORMATION
  Report Type: Spontaneous
  Country: AM (occurrence: AM)
  Receive Date: 20250613
  Receipt Date: 20250613
  Transmission Date: 20250716
  Serious: Yes (Other)
  Sender: ROCHE
  Company Number: AM-ROCHE-10000304848

PATIENT
  Age: 51 Year
  Sex: Male

DRUGS (2)
  1. ATEZOLIZUMAB [Suspect]
     Active Substance: ATEZOLIZUMAB
     Indication: Non-small cell lung cancer metastatic
     Route: 065
     Dates: start: 20211109
  2. PEMETREXED [Suspect]
     Active Substance: PEMETREXED
     Indication: Non-small cell lung cancer metastatic
     Route: 065
     Dates: start: 20211109

REACTIONS (5)
  - Atelectasis [Unknown]
  - Bronchitis [Unknown]
  - Emphysema [Unknown]
  - Metastases to liver [Unknown]
  - Metastasis [Unknown]

NARRATIVE: CASE EVENT DATE: 20220727
